FAERS Safety Report 15329151 (Version 1)
Quarter: 2018Q4

REPORT INFORMATION
  Report Type: Spontaneous
  Country: IT (occurrence: IT)
  Receive Date: 20180829
  Receipt Date: 20180829
  Transmission Date: 20190204
  Serious: Yes (Other)
  Sender: FDA-Public Use
  Company Number: IT-ACCORD-071040

PATIENT
  Sex: Female

DRUGS (4)
  1. ZOLEDRONIC ACID [Suspect]
     Active Substance: ZOLEDRONIC ACID
     Indication: METASTASES TO BONE
     Dosage: TRI-WEEKLY
  2. PACLITAXEL/PACLITAXEL LIPOSOME [Suspect]
     Active Substance: PACLITAXEL
     Indication: METASTASES TO LIVER
     Dosage: TRI-WEEKLY NAB-PACLITAXEL
  3. EVEROLIMUS. [Suspect]
     Active Substance: EVEROLIMUS
     Indication: INVASIVE LOBULAR BREAST CARCINOMA
     Dosage: 10 MG/DIE
  4. EXEMESTANE. [Suspect]
     Active Substance: EXEMESTANE
     Indication: INVASIVE LOBULAR BREAST CARCINOMA

REACTIONS (3)
  - Mucosal inflammation [Unknown]
  - Alopecia [Unknown]
  - Neuropathy peripheral [Unknown]
